FAERS Safety Report 13165688 (Version 3)
Quarter: 2017Q1

REPORT INFORMATION
  Report Type: Spontaneous
  Country: ES (occurrence: ES)
  Receive Date: 20170131
  Receipt Date: 20170302
  Transmission Date: 20170428
  Serious: No
  Sender: FDA-Public Use
  Company Number: ES-009507513-1701ESP010410

PATIENT
  Sex: Male

DRUGS (4)
  1. BRIDION [Suspect]
     Active Substance: SUGAMMADEX
     Dosage: A NEW VIAL OF 2ML, ONCE
     Dates: start: 201701, end: 201701
  2. BRIDION [Suspect]
     Active Substance: SUGAMMADEX
     Indication: NEUROMUSCULAR BLOCKADE REVERSAL
     Dosage: 1 VIAL OF 2ML, ONCE
     Dates: start: 201701, end: 201701
  3. BRIDION [Suspect]
     Active Substance: SUGAMMADEX
     Dosage: TWO MORE VIALS, ONCE
     Dates: start: 201701, end: 201701
  4. ROCURONIUM BROMIDE. [Suspect]
     Active Substance: ROCURONIUM BROMIDE
     Indication: NEUROMUSCULAR BLOCKADE
     Dosage: 30 ML, ONCE
     Dates: start: 201701, end: 201701

REACTIONS (1)
  - Drug effect incomplete [Unknown]

NARRATIVE: CASE EVENT DATE: 201701
